FAERS Safety Report 10733234 (Version 2)
Quarter: 2015Q1

REPORT INFORMATION
  Report Type: Spontaneous
  Country: BR (occurrence: BR)
  Receive Date: 20150123
  Receipt Date: 20150209
  Transmission Date: 20150721
  Serious: Yes (Hospitalization)
  Sender: FDA-Public Use
  Company Number: BR-SA-2015SA006844

PATIENT
  Sex: Male

DRUGS (3)
  1. HUMALOG [Concomitant]
     Active Substance: INSULIN LISPRO
     Dosage: DOSE ADJUSTED ACCORDING TO GLYCEMIC LEVEL.
  2. LANTUS [Suspect]
     Active Substance: INSULIN GLARGINE
     Indication: DIABETES MELLITUS
     Dosage: 60 IU^S OF LANTUS IN THE?MORNING AND 44 IU^S AT NIGHT
     Route: 065
     Dates: start: 201410
  3. LANTUS [Suspect]
     Active Substance: INSULIN GLARGINE
     Indication: DIABETES MELLITUS
     Route: 065

REACTIONS (4)
  - Platelet count decreased [Unknown]
  - Blood glucose increased [Unknown]
  - Bladder cancer [Unknown]
  - Inappropriate schedule of drug administration [Unknown]
